FAERS Safety Report 13164221 (Version 1)
Quarter: 2017Q1

REPORT INFORMATION
  Report Type: Spontaneous
  Country: TR (occurrence: TR)
  Receive Date: 20170130
  Receipt Date: 20170130
  Transmission Date: 20170428
  Serious: Yes (Hospitalization)
  Sender: FDA-Public Use
  Company Number: TR-MERCK KGAA-1062517

PATIENT
  Age: 15 Year
  Sex: Female
  Weight: 35 kg

DRUGS (2)
  1. NOVOTHYROX [Suspect]
     Active Substance: LEVOTHYROXINE SODIUM
     Indication: THYROID DISORDER
  2. SAIZEN [Suspect]
     Active Substance: SOMATROPIN
     Dates: start: 20160627

REACTIONS (4)
  - Diabetic coma [Unknown]
  - Blood caffeine increased [Unknown]
  - Haematotoxicity [Unknown]
  - Syncope [Unknown]

NARRATIVE: CASE EVENT DATE: 20170115
